FAERS Safety Report 6609768-7 (Version None)
Quarter: 2010Q1

REPORT INFORMATION
  Report Type: 
  Country: None (occurrence: None)
  Receive Date: 20100302
  Receipt Date: 20100216
  Transmission Date: 20100710
  Serious: Yes (Other)
  Sender: FDA-Public Use
  Company Number: PHHY2010GB09633

PATIENT
  Sex: Female

DRUGS (2)
  1. SALAGEN [Suspect]
     Indication: DRY MOUTH
     Dosage: UNK
  2. INTERFERON [Concomitant]

REACTIONS (6)
  - COLD SWEAT [None]
  - HEPATIC CIRRHOSIS [None]
  - HEPATIC FUNCTION ABNORMAL [None]
  - HYPERHIDROSIS [None]
  - NASAL POLYPS [None]
  - POLLAKIURIA [None]
